FAERS Safety Report 9039649 (Version 1)
Quarter: 2013Q1

REPORT INFORMATION
  Report Type: Report from Study
  Country: US (occurrence: US)
  Receive Date: 20130129
  Receipt Date: 20130129
  Transmission Date: 20140127
  Serious: No
  Sender: FDA-Public Use
  Company Number: US-ABBOTT-12P-163-0898204-00

PATIENT
  Age: 62 None
  Sex: Female
  Weight: 52.66 kg

DRUGS (13)
  1. HUMIRA 40 MG/0.8 ML PEN [Suspect]
     Indication: RHEUMATOID ARTHRITIS
     Route: 058
     Dates: start: 201010
  2. ARAVA [Concomitant]
     Indication: ARTHRITIS
     Dosage: DAILY
  3. ARAVA [Concomitant]
     Indication: RHEUMATOID ARTHRITIS
  4. DIAZEPAM [Concomitant]
     Indication: ANXIETY
  5. FISH OIL [Concomitant]
     Indication: PRODUCT USED FOR UNKNOWN INDICATION
  6. FOLIC ACID [Concomitant]
     Indication: PRODUCT USED FOR UNKNOWN INDICATION
     Dosage: DAILY
  7. MVI [Concomitant]
     Indication: PRODUCT USED FOR UNKNOWN INDICATION
  8. OMEPRAZOLE [Concomitant]
     Indication: PRODUCT USED FOR UNKNOWN INDICATION
  9. VICODIN [Concomitant]
     Indication: PRODUCT USED FOR UNKNOWN INDICATION
     Dosage: 5/500MG
  10. CIMVEX ON A REGULAR BASIS [Concomitant]
     Indication: ILL-DEFINED DISORDER
  11. CALCIUM WITH VITAMIN D [Concomitant]
     Indication: PRODUCT USED FOR UNKNOWN INDICATION
  12. CYMBALTA [Concomitant]
     Indication: DEPRESSION
  13. PRISTIQ [Concomitant]
     Indication: DEPRESSION
     Dosage: DAILY

REACTIONS (8)
  - Oral herpes [Recovered/Resolved]
  - Unevaluable event [Not Recovered/Not Resolved]
  - Cough [Recovered/Resolved]
  - Increased upper airway secretion [Not Recovered/Not Resolved]
  - Malaise [Not Recovered/Not Resolved]
  - Fatigue [Not Recovered/Not Resolved]
  - Fatigue [Not Recovered/Not Resolved]
  - Arthralgia [Unknown]
